FAERS Safety Report 7501006-6 (Version None)
Quarter: 2011Q2

REPORT INFORMATION
  Report Type: 
  Country: None (occurrence: None)
  Receive Date: 20110524
  Receipt Date: 20100517
  Transmission Date: 20111010
  Serious: No
  Sender: FDA-Public Use
  Company Number: US-NOVEN-ALL1-2010-02869

PATIENT

DRUGS (3)
  1. DAYTRANA [Suspect]
     Dosage: 40 MG (TWO 20 MG PATCHES), 1X/DAY:QD
     Route: 062
     Dates: start: 20091101
  2. DAYTRANA [Suspect]
     Dosage: 30 MG, 1X/DAY:QD
     Route: 062
     Dates: start: 20070101, end: 20091101
  3. NOVOLOG [Concomitant]
     Dosage: UNK, UNKNOWN
     Route: 058
     Dates: start: 20080101

REACTIONS (3)
  - OVERDOSE [None]
  - OFF LABEL USE [None]
  - DRUG INEFFECTIVE [None]
